FAERS Safety Report 11789971 (Version 1)
Quarter: 2015Q4

REPORT INFORMATION
  Report Type: Spontaneous
  Country: CA (occurrence: CA)
  Receive Date: 20151201
  Receipt Date: 20151201
  Transmission Date: 20160305
  Serious: Yes (Other)
  Sender: FDA-Public Use
  Company Number: CA-TEVA-611384ACC

PATIENT
  Age: 66 Year
  Sex: Female

DRUGS (3)
  1. DOXYCYCLINE. [Suspect]
     Active Substance: DOXYCYCLINE
     Indication: PNEUMONIA
     Route: 065
  2. CODEINE [Concomitant]
     Active Substance: CODEINE
  3. ENBREL [Concomitant]
     Active Substance: ETANERCEPT
     Route: 058

REACTIONS (1)
  - Rheumatoid arthritis [Unknown]
